FAERS Safety Report 20173677 (Version 1)
Quarter: 2021Q4

REPORT INFORMATION
  Report Type: Spontaneous
  Country: US (occurrence: US)
  Receive Date: 20211212
  Receipt Date: 20211212
  Transmission Date: 20220303
  Serious: No
  Sender: FDA-Public Use
  Company Number: US-ORGANON-O2112USA000192

PATIENT
  Age: 48 Year
  Sex: Male

DRUGS (2)
  1. PREGNYL [Suspect]
     Active Substance: CHORIOGONADOTROPIN ALFA
     Indication: Testicular disorder
     Dosage: 1500 U, TIW
     Route: 058
     Dates: start: 20210414
  2. WATER FOR INJECTION [Suspect]
     Active Substance: WATER
     Dosage: UNK
     Dates: start: 20210414

REACTIONS (2)
  - Headache [Unknown]
  - Product dose omission issue [Unknown]

NARRATIVE: CASE EVENT DATE: 20211101
